FAERS Safety Report 10020118 (Version 2)
Quarter: 2014Q1

REPORT INFORMATION
  Report Type: Report from Study
  Country: AU (occurrence: AU)
  Receive Date: 20140319
  Receipt Date: 20140325
  Transmission Date: 20141002
  Serious: Yes (Hospitalization)
  Sender: FDA-Public Use
  Company Number: AU-ROCHE-1367155

PATIENT
  Sex: Female
  Weight: 50 kg

DRUGS (4)
  1. RANIBIZUMAB [Suspect]
     Indication: AGE-RELATED MACULAR DEGENERATION
     Dosage: THE LAST DOSE OF RANIBIZUMAB TAKEN PRIOR TO ADVERSE EVENT WAS ON 06/AUG/2013.
     Route: 065
     Dates: start: 20110823
  2. ZOCOR [Concomitant]
  3. AVAPRO [Concomitant]
  4. ISOPTIN [Concomitant]

REACTIONS (1)
  - Cerebrovascular accident [Unknown]
